FAERS Safety Report 16115241 (Version 3)
Quarter: 2019Q2

REPORT INFORMATION
  Report Type: Report from Study
  Country: FR (occurrence: FR)
  Receive Date: 20190325
  Receipt Date: 20190514
  Transmission Date: 20190711
  Serious: Yes (Hospitalization)
  Sender: FDA-Public Use
  Company Number: FR-GILEAD-2019-0398330

PATIENT
  Age: 42 Year
  Sex: Male
  Weight: 65 kg

DRUGS (8)
  1. OXAZEPAM. [Concomitant]
     Active Substance: OXAZEPAM
  2. FUNGIZONE [Concomitant]
     Active Substance: AMPHOTERICIN B
     Indication: CANDIDA INFECTION
     Dosage: UNK
  3. LEVOTHYROXINE. [Concomitant]
     Active Substance: LEVOTHYROXINE
  4. MIDODRINE [Concomitant]
     Active Substance: MIDODRINE
  5. EMTRICITABINE/RILPIVIRINE/TENOFOVIR ALAFENAMIDE [Suspect]
     Active Substance: EMTRICITABINE\RILPIVIRINE HYDROCHLORIDE\TENOFOVIR ALAFENAMIDE FUMARATE
     Indication: HIV INFECTION
     Dosage: UNK
     Route: 065
     Dates: start: 20180307
  6. PREGABALINE [Concomitant]
     Active Substance: PREGABALIN
  7. ACIDE FOLIQUE [Concomitant]
     Active Substance: FOLIC ACID
  8. LORMETAZEPAM [Concomitant]
     Active Substance: LORMETAZEPAM

REACTIONS (2)
  - Odynophagia [Recovered/Resolved]
  - Xeroderma [Recovered/Resolved]

NARRATIVE: CASE EVENT DATE: 20180804
